FAERS Safety Report 8792630 (Version 2)
Quarter: 2015Q2

REPORT INFORMATION
  Report Type: Report from Study
  Country: US (occurrence: US)
  Receive Date: 20120918
  Receipt Date: 20150619
  Transmission Date: 20150821
  Serious: Yes (Death)
  Sender: FDA-Public Use
  Company Number: US-ROCHE-1128486

PATIENT
  Sex: Male
  Weight: 80 kg

DRUGS (5)
  1. XELODA [Suspect]
     Active Substance: CAPECITABINE
     Indication: PRODUCT USED FOR UNKNOWN INDICATION
     Route: 065
  2. CAMPTOSAR [Concomitant]
     Active Substance: IRINOTECAN HYDROCHLORIDE
  3. CYTOXAN [Concomitant]
     Active Substance: CYCLOPHOSPHAMIDE
  4. CARBOPLATIN. [Concomitant]
     Active Substance: CARBOPLATIN
  5. CISPLATIN. [Concomitant]
     Active Substance: CISPLATIN

REACTIONS (5)
  - Fatigue [Unknown]
  - Death [Fatal]
  - Nausea [Unknown]
  - Pain [Unknown]
  - Off label use [Unknown]
